FAERS Safety Report 19401050 (Version 1)
Quarter: 2021Q2

REPORT INFORMATION
  Report Type: Spontaneous
  Country: US (occurrence: US)
  Receive Date: 20210610
  Receipt Date: 20210610
  Transmission Date: 20210717
  Serious: No
  Sender: FDA-Public Use
  Company Number: US-MYLANLABS-2021M1033095

PATIENT
  Sex: Female
  Weight: 109 kg

DRUGS (1)
  1. PROCTOFOAM HC [Suspect]
     Active Substance: HYDROCORTISONE ACETATE\PRAMOXINE HYDROCHLORIDE
     Indication: HAEMORRHOIDS
     Dosage: 1 PERCENT, TID (1 PUMP 3 TIMES A DAY)
     Route: 054
     Dates: start: 202101

REACTIONS (2)
  - Inappropriate schedule of product administration [Not Recovered/Not Resolved]
  - Product leakage [Not Recovered/Not Resolved]

NARRATIVE: CASE EVENT DATE: 2021
